FAERS Safety Report 17922167 (Version 1)
Quarter: 2020Q2

REPORT INFORMATION
  Report Type: Report from Study
  Country: US (occurrence: US)
  Receive Date: 20200622
  Receipt Date: 20200622
  Transmission Date: 20200714
  Serious: Yes (Other)
  Sender: FDA-Public Use
  Company Number: US-ACCORD-185701

PATIENT

DRUGS (1)
  1. HYDROXYCHLOROQUINE [Suspect]
     Active Substance: HYDROXYCHLOROQUINE
     Indication: COVID-19
     Dosage: TWICE DAILY, FOR 2 DOSES, THEN 6.5 MG/KG, ONCE DAILY, FOR 4 DOSES
     Dates: start: 2020, end: 2020

REACTIONS (3)
  - Off label use [Unknown]
  - Electrocardiogram QT prolonged [Unknown]
  - Brugada syndrome [Unknown]

NARRATIVE: CASE EVENT DATE: 2020
